FAERS Safety Report 14558483 (Version 1)
Quarter: 2018Q1

REPORT INFORMATION
  Report Type: Spontaneous
  Country: US (occurrence: US)
  Receive Date: 20180221
  Receipt Date: 20180221
  Transmission Date: 20180509
  Serious: No
  Sender: FDA-Public Use
  Company Number: US-PERRIGO-17US030424

PATIENT
  Age: 35 Year
  Sex: Male
  Weight: 68.27 kg

DRUGS (1)
  1. LOPERAMIDE HYDROCHLORIDE. [Suspect]
     Active Substance: LOPERAMIDE HYDROCHLORIDE
     Indication: ELECTROLYTE IMBALANCE
     Dosage: 2 MG, EVERY 6 HOURS
     Route: 048
     Dates: start: 20171121

REACTIONS (6)
  - Dehydration [Unknown]
  - Malaise [Unknown]
  - Fatigue [Unknown]
  - Off label use [Unknown]
  - Incorrect drug administration duration [Unknown]
  - Dizziness [Unknown]

NARRATIVE: CASE EVENT DATE: 201711
